FAERS Safety Report 8281051-6 (Version None)
Quarter: 2012Q2

REPORT INFORMATION
  Report Type: 
  Country: None (occurrence: None)
  Receive Date: 20120412
  Receipt Date: 20120321
  Transmission Date: 20120825
  Serious: Yes (Death, Hospitalization)
  Sender: FDA-Public Use
  Company Number: TW-BAXTER-2012BAX000270

PATIENT
  Sex: Male

DRUGS (2)
  1. DIANEAL [Suspect]
     Route: 033
     Dates: start: 20060701
  2. EXTRANEAL [Suspect]
     Route: 033
     Dates: start: 20060701

REACTIONS (2)
  - CARDIOVASCULAR DISORDER [None]
  - LOSS OF CONSCIOUSNESS [None]
